APPROVED DRUG PRODUCT: TAO
Active Ingredient: TROLEANDOMYCIN
Strength: EQ 125MG BASE/5ML
Dosage Form/Route: SUSPENSION;ORAL
Application: N050332 | Product #001
Applicant: PFIZER LABORATORIES DIV PFIZER INC
Approved: Approved Prior to Jan 1, 1982 | RLD: No | RS: No | Type: DISCN